FAERS Safety Report 18851180 (Version 1)
Quarter: 2021Q1

REPORT INFORMATION
  Report Type: Report from Study
  Country: ZW (occurrence: ZW)
  Receive Date: 20210205
  Receipt Date: 20210205
  Transmission Date: 20210420
  Serious: Yes (Other)
  Sender: FDA-Public Use
  Company Number: ZW-GILEAD-2021-0515970

PATIENT
  Age: 34 Year
  Sex: Female
  Weight: 57.5 kg

DRUGS (4)
  1. BLINDED CABOTEGRAVIR [Suspect]
     Active Substance: CABOTEGRAVIR
     Indication: PROPHYLAXIS AGAINST HIV INFECTION
     Dosage: 200MG/300MG, QD
     Route: 048
     Dates: start: 20190821, end: 20210119
  2. BLINDED EMTRICITABINE;TENOFOVIR DISOPROXIL FUMARATE [Suspect]
     Active Substance: EMTRICITABINE\TENOFOVIR DISOPROXIL FUMARATE
     Indication: PROPHYLAXIS AGAINST HIV INFECTION
     Dosage: 200MG/300MG, QD
     Route: 048
     Dates: start: 20190821, end: 20210119
  3. JADELLE [Concomitant]
     Active Substance: LEVONORGESTREL
  4. PLACEBO [Suspect]
     Active Substance: UNSPECIFIED INGREDIENT
     Indication: PROPHYLAXIS AGAINST HIV INFECTION
     Dosage: 200MG/300MG, QD
     Route: 048
     Dates: start: 20190821, end: 20210119

REACTIONS (1)
  - Transaminases increased [Recovered/Resolved]

NARRATIVE: CASE EVENT DATE: 20210119
